FAERS Safety Report 8607851 (Version 3)
Quarter: 2014Q1

REPORT INFORMATION
  Report Type: Spontaneous
  Country: US (occurrence: US)
  Receive Date: 20120611
  Receipt Date: 20140110
  Transmission Date: 20141002
  Serious: Yes (Disabling, Other)
  Sender: FDA-Public Use
  Company Number: US-ASTRAZENECA-2012SE35044

PATIENT
  Age: 44 Year
  Sex: Female
  Weight: 81.6 kg

DRUGS (13)
  1. NEXIUM [Suspect]
     Indication: GASTROOESOPHAGEAL REFLUX DISEASE
     Dosage: TWICE
     Route: 048
     Dates: start: 20010222, end: 20100408
  2. NEXIUM [Suspect]
     Indication: GASTROOESOPHAGEAL REFLUX DISEASE
     Route: 048
     Dates: start: 20070222
  3. NEXIUM [Suspect]
     Indication: GASTROOESOPHAGEAL REFLUX DISEASE
     Route: 048
     Dates: start: 20071018
  4. ZANTAC [Concomitant]
     Dates: start: 20120924
  5. PREMARIN [Concomitant]
     Dates: start: 201012
  6. METFORMIN [Concomitant]
     Dates: start: 201012
  7. LISINOPRIL [Concomitant]
     Dates: start: 20060207
  8. TRAMADOL [Concomitant]
     Dates: start: 201012
  9. HYDROCODONE [Concomitant]
     Dates: start: 201012
  10. TRIAM/HCTZ [Concomitant]
     Dosage: 37.5/5 TAB MYL
     Dates: start: 20050207
  11. ASPIRIN [Concomitant]
     Dates: start: 201012
  12. CYCLOBENZAPRINE [Concomitant]
     Dates: start: 20060207
  13. ZYPREXA [Concomitant]
     Dates: start: 20070109

REACTIONS (9)
  - Spinal fracture [Unknown]
  - Musculoskeletal pain [Unknown]
  - Osteoporosis [Unknown]
  - Multiple fractures [Unknown]
  - Facial bones fracture [Unknown]
  - Fall [Unknown]
  - Ulna fracture [Unknown]
  - Rotator cuff syndrome [Unknown]
  - Spinal osteoarthritis [Unknown]
